FAERS Safety Report 14443718 (Version 2)
Quarter: 2018Q3

REPORT INFORMATION
  Report Type: Report from Study
  Country: US (occurrence: US)
  Receive Date: 20180125
  Receipt Date: 20180724
  Transmission Date: 20181010
  Serious: No
  Sender: FDA-Public Use
  Company Number: US-AMGEN-USASL2018001924

PATIENT
  Age: 64 Year
  Sex: Female

DRUGS (2)
  1. KYPROLIS [Suspect]
     Active Substance: CARFILZOMIB
     Indication: PLASMA CELL MYELOMA
     Dosage: UNK, 2 INFUSIONS PER MONTH
     Route: 065
  2. KYPROLIS [Suspect]
     Active Substance: CARFILZOMIB
     Dosage: UNK, 3 INFUSIONS PER MONTH
     Route: 065

REACTIONS (6)
  - Nasopharyngitis [Unknown]
  - Off label use [Unknown]
  - Fatigue [Unknown]
  - Joint swelling [Unknown]
  - Light chain analysis increased [Unknown]
  - Insomnia [Unknown]

NARRATIVE: CASE EVENT DATE: 201803
